FAERS Safety Report 6727037-1 (Version None)
Quarter: 2010Q2

REPORT INFORMATION
  Report Type: 
  Country: None (occurrence: None)
  Receive Date: 20100517
  Receipt Date: 20100506
  Transmission Date: 20101027
  Serious: Yes (Other)
  Sender: FDA-Public Use
  Company Number: US-CELGENEUS-163-21880-10041315

PATIENT
  Sex: Female

DRUGS (4)
  1. REVLIMID [Suspect]
     Indication: LEUKOCYTOSIS
     Route: 048
     Dates: start: 20091211, end: 20100119
  2. REVLIMID [Suspect]
     Indication: MYELOFIBROSIS
  3. ASPIRIN [Concomitant]
     Indication: DRUG USE FOR UNKNOWN INDICATION
     Route: 048
  4. NIFEDIPINE [Concomitant]
     Indication: DRUG USE FOR UNKNOWN INDICATION
     Route: 048
     Dates: start: 20090501

REACTIONS (2)
  - CEREBROVASCULAR ACCIDENT [None]
  - WHITE BLOOD CELL COUNT INCREASED [None]
